FAERS Safety Report 10729095 (Version 2)
Quarter: 2015Q1

REPORT INFORMATION
  Report Type: Spontaneous
  Country: US (occurrence: US)
  Receive Date: 20150122
  Receipt Date: 20150311
  Transmission Date: 20150721
  Serious: No
  Sender: FDA-Public Use
  Company Number: US-ASTRAZENECA-2015SE04645

PATIENT
  Sex: Male
  Weight: 95.3 kg

DRUGS (1)
  1. SYMBICORT [Suspect]
     Active Substance: BUDESONIDE\FORMOTEROL FUMARATE DIHYDRATE
     Indication: ASTHMA
     Dosage: 160 /4.5 MCG, 2 PUFFS,TWO TIMES A DAY
     Route: 055
     Dates: start: 2014

REACTIONS (4)
  - Intentional product misuse [Unknown]
  - Device misuse [Unknown]
  - Incorrect product storage [Unknown]
  - Wheezing [Unknown]
